FAERS Safety Report 13016850 (Version 1)
Quarter: 2016Q4

REPORT INFORMATION
  Report Type: Report from Study
  Country: US (occurrence: US)
  Receive Date: 20161212
  Receipt Date: 20161212
  Transmission Date: 20170207
  Serious: No
  Sender: FDA-Public Use
  Company Number: PHEH2016US032190

PATIENT
  Sex: Female

DRUGS (1)
  1. GLEEVEC [Suspect]
     Active Substance: IMATINIB MESYLATE
     Indication: PRODUCT USED FOR UNKNOWN INDICATION
     Dosage: 2 DF, BID (START WITH ONE TABLET AND INCRESED AS TOLERATED
     Route: 065

REACTIONS (4)
  - Abdominal pain [Unknown]
  - Nausea [Unknown]
  - Back pain [Unknown]
  - Adrenal disorder [Unknown]
